FAERS Safety Report 5015413-7 (Version None)
Quarter: 2006Q2

REPORT INFORMATION
  Report Type: 
  Country: None (occurrence: None)
  Receive Date: 20060530
  Receipt Date: 20060530
  Transmission Date: 20061013
  Serious: Yes (Hospitalization)
  Sender: FDA-Public Use
  Company Number: None

PATIENT
  Age: 88 Year
  Sex: Female
  Weight: 52.1637 kg

DRUGS (2)
  1. WARFARIN SODIUM [Suspect]
     Indication: ATRIAL FIBRILLATION
     Dosage: 6 MG DAILY
  2. MORPHINE [Suspect]
     Indication: PAIN
     Dosage: 2 MG X 2 IV
     Route: 042
     Dates: start: 20050213

REACTIONS (9)
  - BLOOD POTASSIUM INCREASED [None]
  - BREAST HAEMATOMA [None]
  - DRUG TOXICITY [None]
  - HAEMORRHAGE [None]
  - INTERNATIONAL NORMALISED RATIO INCREASED [None]
  - LIVER FUNCTION TEST ABNORMAL [None]
  - MUSCLE STRAIN [None]
  - RENAL IMPAIRMENT [None]
  - RESPIRATORY RATE DECREASED [None]
